FAERS Safety Report 11143121 (Version 1)
Quarter: 2015Q2

REPORT INFORMATION
  Report Type: Spontaneous
  Country: US (occurrence: US)
  Receive Date: 20150526
  Receipt Date: 20150526
  Transmission Date: 20150821
  Serious: No
  Sender: FDA-Public Use
  Company Number: US-009507513-1504USA023573

PATIENT
  Age: 28 Year
  Sex: Female
  Weight: 56.69 kg

DRUGS (1)
  1. NEXPLANON [Suspect]
     Active Substance: ETONOGESTREL
     Dosage: 1 ROD/ 3 YEARS
     Route: 059
     Dates: start: 20130524

REACTIONS (15)
  - Vaginal haemorrhage [Unknown]
  - Fatigue [Unknown]
  - Presyncope [Unknown]
  - Energy increased [Unknown]
  - Back pain [Unknown]
  - Implant site warmth [Unknown]
  - Anxiety [Unknown]
  - Body temperature increased [Unknown]
  - Device breakage [Not Recovered/Not Resolved]
  - Hypoaesthesia [Unknown]
  - Paraesthesia [Unknown]
  - Hyperhidrosis [Unknown]
  - Nausea [Unknown]
  - Dyspnoea [Unknown]
  - Feeling hot [Unknown]

NARRATIVE: CASE EVENT DATE: 20150422
